FAERS Safety Report 7331463-X (Version None)
Quarter: 2011Q1

REPORT INFORMATION
  Report Type: 
  Country: None (occurrence: None)
  Receive Date: 20110304
  Receipt Date: 20110223
  Transmission Date: 20110831
  Serious: Yes (Hospitalization)
  Sender: FDA-Public Use
  Company Number: US-JNJFOC-20101004305

PATIENT
  Sex: Male
  Weight: 12.5 kg

DRUGS (6)
  1. INFLIXIMAB, RECOMBINANT [Suspect]
     Route: 042
  2. PREVACID [Concomitant]
  3. ACETAMINOPHEN [Concomitant]
  4. FLAGYL [Concomitant]
  5. INFLIXIMAB, RECOMBINANT [Suspect]
     Indication: CROHN'S DISEASE
     Route: 042
  6. STEROIDS NOS [Concomitant]
     Route: 048

REACTIONS (1)
  - CROHN'S DISEASE [None]
